FAERS Safety Report 8801056 (Version 1)
Quarter: 2012Q4

REPORT INFORMATION
  Report Type: 
  Country: GB (occurrence: GB)
  Receive Date: 20120921
  Receipt Date: 20120921
  Transmission Date: 20130627
  Serious: Yes (Disabling, Other)
  Sender: FDA-Public Use
  Company Number: GB-WATSON-2012-16379

PATIENT
  Age: 66 Year
  Sex: Female
  Weight: 70 kg

DRUGS (8)
  1. OMEPRAZOLE (UNKNOWN) [Suspect]
     Indication: PRODUCT USED FOR UNKNOWN INDICATION
     Dosage: UNK
     Route: 065
     Dates: start: 20120820
  2. CANDESARTAN [Concomitant]
     Indication: PRODUCT USED FOR UNKNOWN INDICATION
     Dosage: UNK
     Route: 065
     Dates: start: 20120503, end: 20120531
  3. CANDESARTAN [Concomitant]
     Dosage: UNK
     Route: 065
     Dates: start: 20120528, end: 20120625
  4. CANDESARTAN [Concomitant]
     Dosage: UNK
     Route: 065
     Dates: start: 20120625, end: 20120723
  5. CANDESARTAN [Concomitant]
     Dosage: UNK
     Route: 065
     Dates: start: 20120723, end: 20120820
  6. AMOXICILLIN [Concomitant]
     Indication: PRODUCT USED FOR UNKNOWN INDICATION
     Dosage: UNK
     Route: 065
     Dates: start: 20120705, end: 20120706
  7. ERYTHROMYCIN [Concomitant]
     Indication: PRODUCT USED FOR UNKNOWN INDICATION
     Dosage: UNK
     Route: 065
     Dates: start: 20120706, end: 20120707
  8. VENTOLIN                           /00139501/ [Concomitant]
     Indication: PRODUCT USED FOR UNKNOWN INDICATION
     Dosage: UNK
     Route: 065
     Dates: start: 20120821

REACTIONS (3)
  - Dizziness [Recovered/Resolved]
  - Wheezing [Recovered/Resolved]
  - Blood pressure increased [Recovered/Resolved]
